FAERS Safety Report 19408628 (Version 4)
Quarter: 2021Q3

REPORT INFORMATION
  Report Type: Report from Study
  Country: GB (occurrence: GB)
  Receive Date: 20210613
  Receipt Date: 20210922
  Transmission Date: 20211014
  Serious: Yes (Hospitalization, Other)
  Sender: FDA-Public Use
  Company Number: GB-TEVA-2021-GB-1920902

PATIENT
  Age: 26 Year
  Sex: Female

DRUGS (6)
  1. FERROUS FUMARATE [Concomitant]
     Active Substance: FERROUS FUMARATE
     Indication: ANAEMIA
     Dosage: 210 MILLIGRAM, BID
     Route: 048
     Dates: start: 20200607
  2. PREDNISOLONE. [Suspect]
     Active Substance: PREDNISOLONE
     Indication: INFLAMMATORY BOWEL DISEASE
     Dosage: 5MG
     Route: 048
     Dates: start: 20200607
  3. VEDOLIZUMAB [Suspect]
     Active Substance: VEDOLIZUMAB
     Indication: COLITIS ULCERATIVE
     Dosage: UNK; ;
     Route: 042
     Dates: start: 20181003
  4. USTEKINUMAB [Concomitant]
     Active Substance: USTEKINUMAB
     Indication: INFLAMMATORY BOWEL DISEASE
     Dosage: 90 MILLIGRAM, Q8WEEKS
     Route: 042
     Dates: start: 20201022, end: 20201022
  5. FERACCRU [Suspect]
     Active Substance: FERRIC MALTOL
     Indication: PRODUCT USED FOR UNKNOWN INDICATION
     Dosage: 30 MILLIGRAM, BID, UNIT DOSE: 60 MG
     Route: 065
  6. USTEKINUMAB [Concomitant]
     Active Substance: USTEKINUMAB
     Dosage: 90 MILLIGRAM, Q8WEEKS
     Route: 050
     Dates: start: 20201217, end: 20201217

REACTIONS (3)
  - Colitis ulcerative [Recovered/Resolved with Sequelae]
  - Nausea [Recovered/Resolved with Sequelae]
  - Gastrointestinal carcinoma [Recovered/Resolved with Sequelae]

NARRATIVE: CASE EVENT DATE: 202003
